FAERS Safety Report 5237463-8 (Version None)
Quarter: 2007Q1

REPORT INFORMATION
  Report Type: 
  Country: None (occurrence: None)
  Receive Date: 20070213
  Receipt Date: 20070201
  Transmission Date: 20070707
  Serious: Yes (Hospitalization, Other)
  Sender: FDA-Public Use
  Company Number: US-ELI_LILLY_AND_COMPANY-US200702000213

PATIENT
  Sex: Female

DRUGS (1)
  1. HUMATROPE [Suspect]
     Indication: ASTHENIA
     Dosage: UNK, UNKNOWN
     Dates: start: 20020101

REACTIONS (4)
  - BRAIN NEOPLASM [None]
  - DYSGRAPHIA [None]
  - EYE PAIN [None]
  - READING DISORDER [None]
